FAERS Safety Report 5231176-4 (Version None)
Quarter: 2007Q1

REPORT INFORMATION
  Report Type: 
  Country: None (occurrence: None)
  Receive Date: 20070206
  Receipt Date: 20070124
  Transmission Date: 20070707
  Serious: Yes (Hospitalization)
  Sender: FDA-Public Use
  Company Number: US-ELI_LILLY_AND_COMPANY-US200701001744

PATIENT
  Age: 10 Year
  Sex: Male
  Weight: 45 kg

DRUGS (5)
  1. STRATTERA [Suspect]
     Indication: ATTENTION DEFICIT/HYPERACTIVITY DISORDER
     Dosage: 60 MG, DAILY (1/D)
  2. SEROQUEL [Concomitant]
  3. TENEX [Concomitant]
  4. RANITIDINE [Concomitant]
  5. ALBUTEROL [Concomitant]

REACTIONS (3)
  - FEMUR FRACTURE [None]
  - SUBARACHNOID HAEMORRHAGE [None]
  - TRAUMATIC BRAIN INJURY [None]
